FAERS Safety Report 10312650 (Version 1)
Quarter: 2014Q3

REPORT INFORMATION
  Report Type: Not Available
  Country: AU (occurrence: AU)
  Receive Date: 20140718
  Receipt Date: 20140718
  Transmission Date: 20150326
  Serious: No
  Sender: FDA-Public Use
  Company Number: AU-LUPIN PHARMACEUTICALS INC.-2014-01132

PATIENT
  Age: 28 Year
  Sex: Female

DRUGS (1)
  1. ISABELLE [Suspect]
     Active Substance: DROSPIRENONE\ETHINYL ESTRADIOL
     Indication: PRODUCT USED FOR UNKNOWN INDICATION
     Route: 065
     Dates: end: 20140512

REACTIONS (2)
  - Ear discomfort [Recovered/Resolved]
  - Tinnitus [Recovered/Resolved]
